FAERS Safety Report 4376589-8 (Version None)
Quarter: 2004Q2

REPORT INFORMATION
  Report Type: 
  Country: None (occurrence: None)
  Receive Date: 20040608
  Receipt Date: 20040220
  Transmission Date: 20050107
  Serious: Yes (Other)
  Sender: FDA-Public Use
  Company Number: A03200400512

PATIENT
  Age: 78 Year
  Sex: Male
  Weight: 94.8018 kg

DRUGS (2)
  1. LEUPROLIDE ACETATE [Suspect]
     Indication: PROSTATE CANCER
     Dosage: 22.5 MG ONCE - SUBCUTANEOUS
     Route: 058
     Dates: start: 20040210, end: 20040210
  2. TESTOSTERONE [Concomitant]

REACTIONS (8)
  - BACTERIAL INFECTION [None]
  - INJECTION SITE ERYTHEMA [None]
  - INJECTION SITE NECROSIS [None]
  - INJECTION SITE PAIN [None]
  - PROSTATIC SPECIFIC ANTIGEN INCREASED [None]
  - SCAB [None]
  - SKIN REACTION [None]
  - SKIN ULCER [None]
